FAERS Safety Report 15249552 (Version 1)
Quarter: 2018Q3

REPORT INFORMATION
  Report Type: Spontaneous
  Country: US (occurrence: US)
  Receive Date: 20180807
  Receipt Date: 20180807
  Transmission Date: 20181010
  Serious: Yes (Hospitalization)
  Sender: FDA-Public Use
  Company Number: US-UNITED THERAPEUTICS-UNT-2018-011290

PATIENT
  Age: 72 Year
  Sex: Male
  Weight: 65.76 kg

DRUGS (3)
  1. TYVASO [Suspect]
     Active Substance: TREPROSTINIL
     Dosage: 24 ?G, QID
     Dates: start: 20180719
  2. ADCIRCA [Concomitant]
     Active Substance: TADALAFIL
     Indication: PRODUCT USED FOR UNKNOWN INDICATION
     Route: 065
  3. TYVASO [Suspect]
     Active Substance: TREPROSTINIL
     Indication: PULMONARY HYPERTENSION
     Dosage: 18?54 ?G, QID
     Dates: start: 20180709, end: 201807

REACTIONS (4)
  - Oedema peripheral [Unknown]
  - Anaemia [Unknown]
  - Musculoskeletal stiffness [Unknown]
  - Cough [Unknown]

NARRATIVE: CASE EVENT DATE: 201807
